FAERS Safety Report 7611888-5 (Version None)
Quarter: 2011Q3

REPORT INFORMATION
  Report Type: 
  Country: None (occurrence: None)
  Receive Date: 20110715
  Receipt Date: 20110713
  Transmission Date: 20111222
  Serious: Yes (Hospitalization)
  Sender: FDA-Public Use
  Company Number: US-BRISTOL-MYERS SQUIBB COMPANY-15185036

PATIENT
  Age: 69 Year
  Sex: Male

DRUGS (7)
  1. ZESTRIL [Suspect]
     Dates: start: 20070602
  2. ASPIRIN [Concomitant]
  3. PLACEBO [Suspect]
     Indication: TYPE 2 DIABETES MELLITUS
     Route: 048
     Dates: start: 20100701, end: 20100703
  4. NIACIN [Concomitant]
  5. BLINDED: SAXAGLIPTIN [Suspect]
     Indication: TYPE 2 DIABETES MELLITUS
     Dates: start: 20100701, end: 20100703
  6. METFORMIN HCL [Suspect]
     Indication: TYPE 2 DIABETES MELLITUS
     Route: 048
  7. ZOCOR [Suspect]
     Dates: start: 20030101

REACTIONS (2)
  - PANCREATITIS [None]
  - CHEST PAIN [None]
